FAERS Safety Report 23247643 (Version 1)
Quarter: 2023Q4

REPORT INFORMATION
  Report Type: Report from Study
  Country: CA (occurrence: CA)
  Receive Date: 20231130
  Receipt Date: 20231130
  Transmission Date: 20240110
  Serious: No
  Sender: FDA-Public Use
  Company Number: CA-TAKEDA-2023TUS109118

PATIENT
  Age: 2 Year
  Sex: Male

DRUGS (5)
  1. HUMAN IMMUNOGLOBULIN G [Suspect]
     Active Substance: HUMAN IMMUNOGLOBULIN G
     Indication: Primary immunodeficiency syndrome
     Dosage: 2 GRAM, 1/WEEK
     Route: 058
     Dates: start: 20231106
  2. HUMAN IMMUNOGLOBULIN G [Suspect]
     Active Substance: HUMAN IMMUNOGLOBULIN G
     Dosage: 2 GRAM, 1/WEEK
     Route: 050
  3. HUMAN IMMUNOGLOBULIN G [Suspect]
     Active Substance: HUMAN IMMUNOGLOBULIN G
     Dosage: 2 GRAM, 1/WEEK
     Route: 058
  4. HUMAN IMMUNOGLOBULIN G [Suspect]
     Active Substance: HUMAN IMMUNOGLOBULIN G
     Dosage: UNK, 1/WEEK
     Route: 058
  5. PULMICORT TURBUHALER [Concomitant]
     Active Substance: BUDESONIDE
     Dosage: 0.25 MILLIGRAM
     Route: 055

REACTIONS (5)
  - Respiratory tract congestion [Recovered/Resolved]
  - Urine output decreased [Not Recovered/Not Resolved]
  - Cough [Recovered/Resolved]
  - Blood pressure increased [Not Recovered/Not Resolved]
  - Infusion site swelling [Unknown]

NARRATIVE: CASE EVENT DATE: 20231115
